FAERS Safety Report 18056312 (Version 1)
Quarter: 2020Q3

REPORT INFORMATION
  Report Type: Spontaneous
  Country: CN (occurrence: CN)
  Receive Date: 20200722
  Receipt Date: 20200722
  Transmission Date: 20201103
  Serious: Yes (Hospitalization, Other)
  Sender: FDA-Public Use
  Company Number: CN-JNJFOC-20200724047

PATIENT
  Age: 83 Year
  Sex: Male

DRUGS (2)
  1. XARELTO [Suspect]
     Active Substance: RIVAROXABAN
     Indication: ANTICOAGULANT THERAPY
     Dosage: 0.25 DF, QD
     Route: 048
     Dates: start: 20170706, end: 20200522
  2. DIGOXIN. [Concomitant]
     Active Substance: DIGOXIN

REACTIONS (8)
  - Gastritis erosive [Unknown]
  - Blood loss anaemia [Unknown]
  - Oesophageal mass [Unknown]
  - Product prescribing issue [Unknown]
  - Gastrointestinal haemorrhage [Unknown]
  - Gastrooesophageal reflux disease [Unknown]
  - Oedema peripheral [Recovering/Resolving]
  - Oesophageal injury [Unknown]

NARRATIVE: CASE EVENT DATE: 202002
